FAERS Safety Report 21590081 (Version 2)
Quarter: 2022Q4

REPORT INFORMATION
  Report Type: Spontaneous
  Country: JP (occurrence: JP)
  Receive Date: 20221114
  Receipt Date: 20221229
  Transmission Date: 20230113
  Serious: Yes (Hospitalization, Other)
  Sender: FDA-Public Use
  Company Number: JP-MSD-M2022-47383

PATIENT
  Age: 9 Decade
  Sex: Male

DRUGS (4)
  1. KEYTRUDA [Suspect]
     Active Substance: PEMBROLIZUMAB
     Indication: Oesophageal carcinoma
     Dosage: 200 MILLIGRAM, Q3W
     Route: 041
     Dates: end: 2022
  2. CISPLATIN [Suspect]
     Active Substance: CISPLATIN
     Dosage: 40 MILLIGRAM/SQ. METER, EVERY 4 WEEKS
     Route: 041
     Dates: start: 202210, end: 2022
  3. CISPLATIN [Suspect]
     Active Substance: CISPLATIN
     Dosage: 20 MILLIGRAM/SQ. METER, EVERY 4 WEEKS
     Route: 041
     Dates: start: 2022, end: 2022
  4. FLUOROURACIL [Concomitant]
     Active Substance: FLUOROURACIL
     Dosage: UNK
     Route: 041
     Dates: start: 202210, end: 2022

REACTIONS (2)
  - Malignant neoplasm progression [Unknown]
  - Renal impairment [Unknown]

NARRATIVE: CASE EVENT DATE: 20221001
